FAERS Safety Report 7243808-X (Version None)
Quarter: 2011Q1

REPORT INFORMATION
  Report Type: 
  Country: None (occurrence: None)
  Receive Date: 20110125
  Receipt Date: 20110112
  Transmission Date: 20110831
  Serious: Yes (Hospitalization, Other)
  Sender: FDA-Public Use
  Company Number: PHHY2010US87810

PATIENT
  Age: 58 Year
  Sex: Male

DRUGS (2)
  1. ENALAPRIL [Suspect]
     Dosage: 10 MG, UNK
  2. ENALAPRIL MALEATE [Suspect]
     Dosage: 25 MG, UNK

REACTIONS (10)
  - CHEST PAIN [None]
  - DIABETES MELLITUS [None]
  - BLOOD PRESSURE DECREASED [None]
  - ATELECTASIS [None]
  - PNEUMOTHORAX [None]
  - FALL [None]
  - DIZZINESS [None]
  - SYNCOPE [None]
  - HEART RATE INCREASED [None]
  - RIB FRACTURE [None]
